FAERS Safety Report 19032895 (Version 1)
Quarter: 2021Q1

REPORT INFORMATION
  Report Type: Spontaneous
  Country: US (occurrence: US)
  Receive Date: 20210319
  Receipt Date: 20210319
  Transmission Date: 20210420
  Serious: No
  Sender: FDA-Public Use
  Company Number: US-THERAPEUTICSMD-2021TMD01064

PATIENT
  Sex: Female

DRUGS (1)
  1. IMVEXXY [Suspect]
     Active Substance: ESTRADIOL
     Indication: ATROPHIC VULVOVAGINITIS
     Dosage: UNK, 2X/WEEK
     Route: 067
     Dates: start: 2018, end: 202102

REACTIONS (4)
  - Cerebral atrophy [Unknown]
  - Hypertension [Unknown]
  - Off label use [Recovered/Resolved]
  - Cognitive disorder [Unknown]

NARRATIVE: CASE EVENT DATE: 2018
